FAERS Safety Report 24992858 (Version 2)
Quarter: 2025Q1

REPORT INFORMATION
  Report Type: Spontaneous
  Country: RU (occurrence: RU)
  Receive Date: 20250221
  Receipt Date: 20250305
  Transmission Date: 20250408
  Serious: Yes (Other)
  Sender: RANBAXY
  Company Number: RU-SUN PHARMACEUTICAL INDUSTRIES LTD-2025R1-494070

PATIENT
  Age: 17 Year
  Sex: Male

DRUGS (1)
  1. SOTRET [Suspect]
     Active Substance: ISOTRETINOIN
     Indication: Product used for unknown indication
     Route: 065

REACTIONS (4)
  - Condition aggravated [Unknown]
  - Drug ineffective [Unknown]
  - Dry skin [Unknown]
  - Lip dry [Unknown]
